FAERS Safety Report 7286212-0 (Version None)
Quarter: 2011Q1

REPORT INFORMATION
  Report Type: 
  Country: None (occurrence: None)
  Receive Date: 20110210
  Receipt Date: 20110201
  Transmission Date: 20110831
  Serious: Yes (Hospitalization)
  Sender: FDA-Public Use
  Company Number: PHHY2010MX42008

PATIENT
  Sex: Female

DRUGS (4)
  1. ACLASTA [Suspect]
     Indication: OSTEOPOROSIS
     Dosage: 5 MG
     Route: 042
     Dates: start: 20090801
  2. OMEPRAZOLE [Concomitant]
  3. CALCIUM [Concomitant]
  4. ASCRIPTIN [Concomitant]

REACTIONS (1)
  - HIP FRACTURE [None]
